FAERS Safety Report 4634823-0 (Version None)
Quarter: 2005Q2

REPORT INFORMATION
  Report Type: 
  Country: None (occurrence: None)
  Receive Date: 20050412
  Receipt Date: 20050401
  Transmission Date: 20051028
  Serious: Yes (Hospitalization)
  Sender: FDA-Public Use
  Company Number: 200510910GDS

PATIENT
  Age: 70 Year
  Sex: Male

DRUGS (3)
  1. CIPROFLOXACIN [Suspect]
     Indication: HAEMATURIA
     Dosage: 500 MG, BID,
  2. METOPROLOL TARTRATE [Concomitant]
  3. ROFECOXIB [Concomitant]

REACTIONS (13)
  - APHASIA [None]
  - AREFLEXIA [None]
  - BLADDER DISORDER [None]
  - BLOOD PRESSURE INCREASED [None]
  - COGNITIVE DISORDER [None]
  - DISEASE RECURRENCE [None]
  - DISORIENTATION [None]
  - GRAND MAL CONVULSION [None]
  - HAEMATURIA [None]
  - HYPONATRAEMIA [None]
  - INAPPROPRIATE ANTIDIURETIC HORMONE SECRETION [None]
  - LETHARGY [None]
  - NEUROLOGICAL SYMPTOM [None]
